FAERS Safety Report 20194622 (Version 1)
Quarter: 2021Q4

REPORT INFORMATION
  Report Type: Spontaneous
  Country: AR (occurrence: AR)
  Receive Date: 20211216
  Receipt Date: 20211216
  Transmission Date: 20220303
  Serious: Yes (Other)
  Sender: FDA-Public Use
  Company Number: AR-PFIZER INC-202101729125

PATIENT
  Age: 50 Year
  Sex: Female

DRUGS (1)
  1. VYNDAQEL [Suspect]
     Active Substance: TAFAMIDIS MEGLUMINE
     Indication: Hereditary neuropathic amyloidosis
     Dosage: UNK
     Dates: start: 2014

REACTIONS (9)
  - Neuropathy peripheral [Unknown]
  - Gastrointestinal disorder [Unknown]
  - Abdominal pain [Unknown]
  - Pain [Unknown]
  - Loss of personal independence in daily activities [Unknown]
  - Axonal neuropathy [Unknown]
  - Nerve stimulation test abnormal [Unknown]
  - Electromyogram abnormal [Unknown]
  - Eye disorder [Unknown]
